FAERS Safety Report 9531802 (Version 2)
Quarter: 2013Q4

REPORT INFORMATION
  Report Type: Spontaneous
  Country: US (occurrence: US)
  Receive Date: 20130918
  Receipt Date: 20131022
  Transmission Date: 20140711
  Serious: No
  Sender: FDA-Public Use
  Company Number: US-PFIZER INC-2013264048

PATIENT
  Age: 80 Year
  Sex: Female
  Weight: 72.56 kg

DRUGS (6)
  1. DETROL LA [Suspect]
     Indication: URINARY INCONTINENCE
     Dosage: 4 MG, 1X/DAY
     Dates: start: 201308, end: 201309
  2. DETROL LA [Suspect]
     Dosage: 4 MG, 1X/DAY
     Dates: start: 20130910
  3. NIACIN [Concomitant]
     Dosage: UNK
  4. PROPAFENONE [Concomitant]
     Dosage: UNK
  5. DILTIAZEM [Concomitant]
     Dosage: UNK
  6. DIGOXIN [Concomitant]
     Dosage: UNK

REACTIONS (2)
  - Pruritus [Not Recovered/Not Resolved]
  - Drug hypersensitivity [Unknown]
